FAERS Safety Report 6190511-3 (Version None)
Quarter: 2009Q2

REPORT INFORMATION
  Report Type: 
  Country: None (occurrence: None)
  Receive Date: 20090514
  Receipt Date: 20090501
  Transmission Date: 20091009
  Serious: Yes (Other)
  Sender: FDA-Public Use
  Company Number: PHHY2009CA16789

PATIENT
  Sex: Male

DRUGS (2)
  1. CLOZARIL [Suspect]
     Dosage: UNK
     Dates: start: 20030512
  2. CLOZARIL [Suspect]
     Dosage: UNK

REACTIONS (2)
  - ENDOTOXIC SHOCK [None]
  - INFECTION [None]
